FAERS Safety Report 17172007 (Version 1)
Quarter: 2019Q4

REPORT INFORMATION
  Report Type: Spontaneous
  Country: CA (occurrence: CA)
  Receive Date: 20191218
  Receipt Date: 20191218
  Transmission Date: 20200122
  Serious: Yes (Other)
  Sender: FDA-Public Use
  Company Number: CA-PFIZER INC-2018501734

PATIENT
  Age: 52 Year
  Sex: Male

DRUGS (7)
  1. TESTOSTERONE. [Concomitant]
     Active Substance: TESTOSTERONE
     Dosage: UNK
     Route: 065
  2. SYNTHROID [Concomitant]
     Active Substance: LEVOTHYROXINE SODIUM
     Dosage: 0.125 UG, UNK
     Route: 065
  3. LANREOTIDE [Concomitant]
     Active Substance: LANREOTIDE
     Dosage: 90 ML, MONTHLY
     Route: 030
  4. SOMAVERT [Concomitant]
     Active Substance: PEGVISOMANT
     Dosage: LOADING DOSE OF 40 MG FOLLOWED BY 10-30 MG, 1X/DAY
  5. PREDNISONE. [Concomitant]
     Active Substance: PREDNISONE
     Dosage: UNK
     Route: 065
  6. JANUMET [Concomitant]
     Active Substance: METFORMIN HYDROCHLORIDE\SITAGLIPTIN PHOSPHATE
     Dosage: 50MG, UNK
     Route: 065
  7. CABERGOLINE. [Suspect]
     Active Substance: CABERGOLINE
     Dosage: 0.5 MG, THREE TIMES A WEEK
     Route: 065

REACTIONS (5)
  - Drug ineffective [Unknown]
  - Insulin-like growth factor increased [Unknown]
  - Growth hormone-producing pituitary tumour [Unknown]
  - Weight increased [Unknown]
  - Condition aggravated [Unknown]
